FAERS Safety Report 9228007 (Version 2)
Quarter: 2013Q2

REPORT INFORMATION
  Report Type: Spontaneous
  Country: JP (occurrence: JP)
  Receive Date: 20130412
  Receipt Date: 20130610
  Transmission Date: 20140414
  Serious: Yes (Death, Hospitalization, Other)
  Sender: FDA-Public Use
  Company Number: JP-ROCHE-1148977

PATIENT
  Age: 74 Year
  Sex: Female
  Weight: 59 kg

DRUGS (21)
  1. ACTEMRA [Suspect]
     Indication: RHEUMATOID ARTHRITIS
     Dosage: DOSAGE IS UNCERTAIN.
     Route: 041
     Dates: start: 20120126, end: 20120906
  2. PREDONINE [Suspect]
     Indication: RHEUMATOID ARTHRITIS
     Route: 048
     Dates: start: 20100803, end: 20100817
  3. PREDONINE [Suspect]
     Indication: RHEUMATOID ARTHRITIS
     Route: 048
     Dates: start: 20100818, end: 20100905
  4. PREDONINE [Suspect]
     Indication: RHEUMATOID ARTHRITIS
     Route: 048
     Dates: start: 20100906, end: 20101004
  5. PREDONINE [Suspect]
     Indication: RHEUMATOID ARTHRITIS
     Route: 048
     Dates: start: 20101005, end: 20101101
  6. PREDONINE [Suspect]
     Indication: RHEUMATOID ARTHRITIS
     Route: 048
     Dates: start: 20101102, end: 20101209
  7. PREDONINE [Suspect]
     Indication: RHEUMATOID ARTHRITIS
     Route: 048
     Dates: start: 20101210, end: 20110106
  8. PREDONINE [Suspect]
     Indication: RHEUMATOID ARTHRITIS
     Route: 048
     Dates: start: 20110107, end: 20110203
  9. PREDONINE [Suspect]
     Indication: RHEUMATOID ARTHRITIS
     Route: 048
     Dates: start: 20110204, end: 20110613
  10. PREDONINE [Suspect]
     Indication: RHEUMATOID ARTHRITIS
     Route: 048
     Dates: start: 20110614, end: 20120322
  11. PREDONINE [Suspect]
     Indication: RHEUMATOID ARTHRITIS
     Route: 048
     Dates: start: 20120323
  12. BREDININ [Suspect]
     Indication: RHEUMATOID ARTHRITIS
     Route: 048
     Dates: start: 20120223, end: 20120927
  13. CRESTOR [Concomitant]
     Indication: DYSLIPIDAEMIA
     Route: 048
  14. TAKEPRON [Concomitant]
     Indication: ULCER
     Route: 048
     Dates: start: 20100906
  15. LASIX [Concomitant]
     Indication: HYPERTENSION
     Route: 048
     Dates: start: 20110711
  16. CELECOX [Concomitant]
     Indication: RHEUMATOID ARTHRITIS
     Route: 048
     Dates: start: 20100906
  17. MUCOSTA [Concomitant]
     Indication: GASTRIC ULCER
     Route: 048
  18. MICARDIS [Concomitant]
     Indication: HYPERTENSION
     Route: 048
     Dates: start: 20110106
  19. ACTONEL [Concomitant]
     Indication: OSTEOPOROSIS
     Route: 048
     Dates: start: 20100818
  20. BAKTAR [Concomitant]
     Indication: ANTIFUNGAL PROPHYLAXIS
     Route: 048
     Dates: start: 20110516
  21. SYMBICORT [Concomitant]
     Indication: ASTHMA
     Route: 055
     Dates: start: 20100721

REACTIONS (6)
  - Herpes zoster oticus [Unknown]
  - Acute respiratory distress syndrome [Fatal]
  - Bronchopneumonia [Recovered/Resolved]
  - Renal impairment [Recovered/Resolved]
  - Meningitis aseptic [Recovered/Resolved]
  - Bacteraemia [Unknown]
